FAERS Safety Report 7358474-2 (Version None)
Quarter: 2011Q1

REPORT INFORMATION
  Report Type: 
  Country: None (occurrence: None)
  Receive Date: 20110317
  Receipt Date: 20110307
  Transmission Date: 20110831
  Serious: Yes (Hospitalization)
  Sender: FDA-Public Use
  Company Number: CA-JNJFOC-20110303981

PATIENT
  Sex: Male
  Weight: 53 kg

DRUGS (1)
  1. REMICADE [Suspect]
     Indication: CROHN'S DISEASE
     Dosage: 1-4 INFUSIONS
     Route: 042

REACTIONS (2)
  - RECTAL HAEMORRHAGE [None]
  - BLOOD PRESSURE DECREASED [None]
